FAERS Safety Report 4340187-2 (Version None)
Quarter: 2004Q2

REPORT INFORMATION
  Report Type: 
  Country: None (occurrence: None)
  Receive Date: 20040416
  Receipt Date: 20040322
  Transmission Date: 20050107
  Serious: Yes (Death, Hospitalization)
  Sender: FDA-Public Use
  Company Number: JP-MERCK-0403USA02098

PATIENT
  Age: 71 Year
  Sex: Male

DRUGS (6)
  1. ALLOPURINOL [Suspect]
     Indication: GOUT
     Route: 048
     Dates: start: 20030807, end: 20030928
  2. BUDESONIDE [Concomitant]
     Route: 065
     Dates: start: 20030515, end: 20030928
  3. DICLOFENAC SODIUM [Suspect]
     Indication: GOUT
     Route: 048
     Dates: start: 20030925, end: 20030928
  4. SINGULAIR [Suspect]
     Indication: ASTHMA
     Route: 048
     Dates: start: 20021128, end: 20030928
  5. OMEPRAZOLE [Concomitant]
     Indication: GASTRIC ULCER
     Route: 065
     Dates: start: 20030925, end: 20030928
  6. PROPIVERINE HYDROCHLORIDE [Suspect]
     Indication: NEUROGENIC BLADDER
     Route: 048
     Dates: start: 20020307, end: 20030928

REACTIONS (3)
  - ASTHMA [None]
  - HAEMATEMESIS [None]
  - THROMBOSIS [None]
